FAERS Safety Report 7255059-3 (Version None)
Quarter: 2011Q1

REPORT INFORMATION
  Report Type: 
  Country: None (occurrence: None)
  Receive Date: 20110129
  Receipt Date: 20100419
  Transmission Date: 20110831
  Serious: No
  Sender: FDA-Public Use
  Company Number: US-ABBOTT-10P-163-0635390-00

PATIENT
  Sex: Male
  Weight: 104.42 kg

DRUGS (7)
  1. HYDROCHLOROTHIAZIDE [Concomitant]
     Indication: HYPERTENSION
  2. OMEPRAZOLE [Concomitant]
     Indication: GASTROOESOPHAGEAL REFLUX DISEASE
  3. HUMIRA [Suspect]
     Indication: PSORIASIS
     Dates: start: 20080101, end: 20080101
  4. BENZAPRIL [Concomitant]
     Indication: HYPERTENSION
  5. HUMIRA [Suspect]
     Dosage: HUMIRA PRE-FILLED SYRINGE
     Dates: start: 20080101, end: 20090701
  6. LIPITOR [Concomitant]
     Indication: BLOOD CHOLESTEROL INCREASED
  7. DILTIAZEM HCL [Concomitant]
     Indication: HYPERTENSION

REACTIONS (1)
  - PSORIASIS [None]
